FAERS Safety Report 6428811-1 (Version None)
Quarter: 2009Q4

REPORT INFORMATION
  Report Type: 
  Country: None (occurrence: None)
  Receive Date: 20091105
  Receipt Date: 20091028
  Transmission Date: 20100525
  Serious: Yes (Hospitalization)
  Sender: FDA-Public Use
  Company Number: JP-JNJFOC-20091008999

PATIENT
  Sex: Female
  Weight: 45 kg

DRUGS (13)
  1. DOXORUBICIN HCL [Suspect]
     Route: 042
  2. DOXORUBICIN HCL [Suspect]
     Indication: OVARIAN CANCER RECURRENT
     Route: 042
  3. AZUNOL [Concomitant]
     Indication: PROPHYLAXIS
     Route: 049
  4. DUROTEP [Concomitant]
     Indication: OVARIAN CANCER RECURRENT
     Route: 062
  5. LECICARBON [Concomitant]
     Route: 054
  6. BUSCOPAN [Concomitant]
     Route: 048
  7. PRIMPERAN [Concomitant]
     Route: 048
  8. ISOSORBIDE DINITRATE [Concomitant]
     Route: 062
  9. MAGNESIUM OXIDE [Concomitant]
     Route: 048
  10. FULCALIQ [Concomitant]
     Route: 042
  11. MINERALIN [Concomitant]
     Route: 042
  12. PRIMPERAN [Concomitant]
     Route: 042
  13. GASTER [Concomitant]
     Route: 042

REACTIONS (3)
  - BACTERAEMIA [None]
  - ISCHAEMIC CARDIOMYOPATHY [None]
  - NEUTROPHIL COUNT DECREASED [None]
